FAERS Safety Report 5477648-9 (Version None)
Quarter: 2007Q4

REPORT INFORMATION
  Report Type: 
  Country: None (occurrence: None)
  Receive Date: 20071002
  Receipt Date: 20070730
  Transmission Date: 20080405
  Serious: Yes (Hospitalization)
  Sender: FDA-Public Use
  Company Number: 2007RR-09602

PATIENT
  Age: 17 Year
  Sex: Female

DRUGS (2)
  1. ASPIRIN [Suspect]
     Indication: TOOTHACHE
     Dosage: 300, TID, ORAL
     Route: 048
  2. IBUPROFEN [Suspect]
     Indication: TOOTHACHE
     Dosage: 600 MG, QD, ORAL
     Route: 048

REACTIONS (1)
  - ACCIDENTAL OVERDOSE [None]
